FAERS Safety Report 11223382 (Version 2)
Quarter: 2015Q3

REPORT INFORMATION
  Report Type: Spontaneous
  Country: FR (occurrence: FR)
  Receive Date: 20150627
  Receipt Date: 20150724
  Transmission Date: 20151125
  Serious: Yes (Hospitalization)
  Sender: FDA-Public Use
  Company Number: FR-009507513-1506FRA010897

PATIENT
  Age: 65 Year
  Sex: Male
  Weight: 101 kg

DRUGS (17)
  1. CROMEDIL [Concomitant]
     Dosage: 2 DROPS ON THE MORNING AND 2 DROPS ON THE EVENING FOR EACH EYE
     Route: 047
     Dates: start: 20131122
  2. LASILIX [Suspect]
     Active Substance: FUROSEMIDE
     Dosage: 20 MG, ONCE DAILY
     Route: 048
     Dates: start: 20130905
  3. APRANAX (NAPROXEN SODIUM) [Suspect]
     Active Substance: NAPROXEN SODIUM
     Dosage: UNK
     Route: 048
  4. DOLIPRANE [Concomitant]
     Active Substance: ACETAMINOPHEN
     Dosage: 2 DF, FOUR TIMES DAILY
     Route: 048
     Dates: start: 20140730
  5. STILNOX [Concomitant]
     Active Substance: ZOLPIDEM TARTRATE
     Dosage: 10 MG, ONCE DAILY
     Route: 048
     Dates: start: 20121122
  6. LASILIX [Suspect]
     Active Substance: FUROSEMIDE
     Dosage: 40 MG, QD
     Route: 048
     Dates: start: 20130905
  7. LOSARTAN ZENTIVA 50MG, COMPRIM? PELLICUL? S?CABLE [Suspect]
     Active Substance: LOSARTAN
     Dosage: 50 MG, ONCE DAILY
     Route: 048
     Dates: start: 20120807, end: 20150507
  8. PRAVASTATIN SODIUM. [Concomitant]
     Active Substance: PRAVASTATIN SODIUM
     Dosage: 40 MG, QD
     Route: 048
     Dates: start: 20120720
  9. LISINOPRIL. [Suspect]
     Active Substance: LISINOPRIL
     Dosage: 20 MG, ONCE DAILY
     Route: 048
     Dates: start: 20120806, end: 20150507
  10. RISPERDAL CONSTA [Concomitant]
     Active Substance: RISPERIDONE
     Dosage: 37.5MG/2ML POWDER AND SOLVENT FOR INJECTION, 1 DF, ONCE DAILY IV
     Route: 042
     Dates: start: 20130102
  11. PYRIDOXINE [Concomitant]
     Active Substance: PYRIDOXINE
     Dosage: 2 DF, THREE TIMES DAILY
     Route: 048
     Dates: start: 20120720
  12. MONTELUKAST SODIUM. [Concomitant]
     Active Substance: MONTELUKAST SODIUM
     Dosage: 10 MG, ONCE DAILY
     Route: 048
     Dates: start: 20140730, end: 20150507
  13. SERETIDE [Concomitant]
     Active Substance: FLUTICASONE FUROATE\SALMETEROL XINAFOATE
     Dosage: 250/50MCG/DOSE, 2 DF, BID
     Route: 055
     Dates: start: 20110318
  14. SEROPLEX [Concomitant]
     Active Substance: ESCITALOPRAM OXALATE
     Dosage: 10 MG, ONCE DAILY
     Route: 048
     Dates: start: 20120721
  15. ALDACTONE [Suspect]
     Active Substance: SPIRONOLACTONE
     Dosage: 50 MG, ONCE DAILY
     Route: 048
     Dates: start: 20120721, end: 20150507
  16. DEXERYL CREAM [Concomitant]
     Active Substance: GLYCERIN\PARAFFIN
     Dosage: 1 DF, BID
     Route: 003
     Dates: start: 20130404
  17. THIAMINE. [Concomitant]
     Active Substance: THIAMINE
     Dosage: 2 DF, THREE TIMES DAILY
     Route: 048
     Dates: start: 20120720

REACTIONS (4)
  - Acute kidney injury [Recovered/Resolved]
  - Acute prerenal failure [None]
  - Eschar [None]
  - Hyperkalaemia [Recovered/Resolved]

NARRATIVE: CASE EVENT DATE: 20150429
